FAERS Safety Report 13949567 (Version 1)
Quarter: 2017Q3

REPORT INFORMATION
  Report Type: Spontaneous
  Country: US (occurrence: US)
  Receive Date: 20170908
  Receipt Date: 20170908
  Transmission Date: 20171128
  Serious: Yes (Hospitalization, Other)
  Sender: FDA-Public Use
  Company Number: US-TEVA-803450USA

PATIENT
  Age: 46 Year
  Sex: Male

DRUGS (7)
  1. BUSPIRON [Concomitant]
     Active Substance: BUSPIRONE HYDROCHLORIDE
     Route: 065
  2. LAMOTRIGINE. [Concomitant]
     Active Substance: LAMOTRIGINE
     Route: 065
  3. DULOXETINE. [Concomitant]
     Active Substance: DULOXETINE
     Route: 065
  4. GABAPENTIN. [Concomitant]
     Active Substance: GABAPENTIN
     Route: 065
  5. AMLODIPINE [Concomitant]
     Active Substance: AMLODIPINE BESYLATE
     Route: 065
  6. COPAXONE [Suspect]
     Active Substance: GLATIRAMER ACETATE
     Indication: MULTIPLE SCLEROSIS
     Dosage: UNKNOWN FORM STRENGTH
     Route: 065
  7. HYDROXYZINE [Concomitant]
     Active Substance: HYDROXYZINE HYDROCHLORIDE
     Route: 065

REACTIONS (18)
  - Urinary retention [Unknown]
  - Blindness [Unknown]
  - Acute disseminated encephalomyelitis [Unknown]
  - Eye pain [Unknown]
  - Incontinence [Unknown]
  - Rocky mountain spotted fever [Unknown]
  - Muscular weakness [Unknown]
  - Balance disorder [Unknown]
  - Sensory loss [Unknown]
  - Constipation [Unknown]
  - Hemiparesis [Unknown]
  - Anger [Unknown]
  - Neuropathy peripheral [Unknown]
  - Papilloedema [Unknown]
  - Visual impairment [Unknown]
  - Hypoaesthesia [Unknown]
  - Neuromyelitis optica spectrum disorder [Unknown]
  - Tremor [Unknown]

NARRATIVE: CASE EVENT DATE: 20160624
